FAERS Safety Report 5248858-0 (Version None)
Quarter: 2007Q1

REPORT INFORMATION
  Report Type: 
  Country: None (occurrence: None)
  Receive Date: 20070228
  Receipt Date: 20060407
  Transmission Date: 20070707
  Serious: No
  Sender: FDA-Public Use
  Company Number: US-GLAXOSMITHKLINE-A0598425A

PATIENT
  Age: 59 Year
  Sex: Male

DRUGS (5)
  1. VALTREX [Suspect]
     Dosage: 1G TWICE PER DAY
     Route: 048
     Dates: start: 20060301
  2. CELEBREX [Concomitant]
  3. ATIVAN [Concomitant]
  4. DENAVIR [Concomitant]
  5. SERZONE [Concomitant]

REACTIONS (1)
  - GASTROINTESTINAL PAIN [None]
